FAERS Safety Report 9512357 (Version 2)
Quarter: 2014Q1

REPORT INFORMATION
  Report Type: Report from Study
  Country: US (occurrence: US)
  Receive Date: 20130910
  Receipt Date: 20140305
  Transmission Date: 20141002
  Serious: Yes (Hospitalization)
  Sender: FDA-Public Use
  Company Number: US-PFIZER INC-2013256047

PATIENT
  Age: 48 Year
  Sex: Female
  Weight: 101 kg

DRUGS (19)
  1. DOXORUBICIN HCL [Suspect]
     Indication: SARCOMA
     Dosage: UNK
     Dates: start: 20130306
  2. DOXORUBICIN HCL [Suspect]
     Dosage: 75 MG/M2 / 160MG / BOLUS / CYCLE #2
     Route: 040
     Dates: start: 20130327, end: 20130327
  3. TH-302 [Suspect]
     Indication: SARCOMA
     Dosage: UNK
     Dates: start: 20130306
  4. TH-302 [Suspect]
     Dosage: 300 MG/M2/639 MG / INFUSION / CYCLE#2 / DAY 8
     Dates: start: 20130403, end: 20130403
  5. PEGFILGRASTIM [Concomitant]
     Dosage: UNK
     Dates: start: 20130403, end: 20130403
  6. LEXAPRO [Concomitant]
     Dosage: UNK
     Dates: start: 2012
  7. MELATONIN [Concomitant]
     Dosage: UNK
     Dates: start: 2011
  8. ZYPREXA [Concomitant]
     Dosage: UNK
     Dates: start: 2010
  9. DEXAMETHASONE [Concomitant]
     Dosage: UNK
     Dates: start: 20130306
  10. DEXAMETHASONE [Concomitant]
     Dosage: UNK
     Dates: start: 20130307
  11. LIDOCAINE AND PRILOCAINE [Concomitant]
     Dosage: UNK
     Dates: start: 20130227
  12. LORAZEPAM [Concomitant]
     Dosage: UNK
     Dates: start: 20130227
  13. ONDANSETRON [Concomitant]
     Dosage: UNK
     Dates: start: 20130306
  14. ONDANSETRON [Concomitant]
     Dosage: UNK
     Dates: start: 20130313
  15. PROCHLORPERAZINE MALEATE [Concomitant]
     Dosage: UNK
     Dates: start: 20130227
  16. PREPARATION H [Concomitant]
     Dosage: UNK
     Dates: start: 20130306
  17. PALONOSETRON [Concomitant]
     Dosage: UNK
     Dates: start: 20130306
  18. FOSAPREPITANT [Concomitant]
     Dosage: UNK
     Dates: start: 20130306
  19. CEPHALEXIN [Concomitant]
     Dosage: UNK
     Dates: end: 20130406

REACTIONS (2)
  - Febrile neutropenia [Recovered/Resolved]
  - Urinary tract infection [Recovered/Resolved]
